FAERS Safety Report 12677882 (Version 1)
Quarter: 2016Q3

REPORT INFORMATION
  Report Type: Spontaneous
  Country: US (occurrence: US)
  Receive Date: 20160823
  Receipt Date: 20160823
  Transmission Date: 20161109
  Serious: No
  Sender: FDA-Public Use
  Company Number: US-TARO-2015TAR00871

PATIENT
  Age: 64 Year
  Sex: Female

DRUGS (1)
  1. WARFARIN SODIUM TABLETS USP 5MG [Suspect]
     Active Substance: WARFARIN SODIUM
     Indication: PROTEIN S DEFICIENCY
     Dosage: UNSPECIFIED, VARIED DOSING
     Route: 048
     Dates: start: 201402, end: 201503

REACTIONS (2)
  - Reaction to drug excipients [Not Recovered/Not Resolved]
  - Rash [Not Recovered/Not Resolved]

NARRATIVE: CASE EVENT DATE: 201411
